FAERS Safety Report 5120309-6 (Version None)
Quarter: 2006Q4

REPORT INFORMATION
  Report Type: 
  Country: None (occurrence: None)
  Receive Date: 20061004
  Receipt Date: 20060922
  Transmission Date: 20070319
  Serious: Yes (Other)
  Sender: FDA-Public Use
  Company Number: FR-JNJFOC-20060603226

PATIENT
  Sex: Female
  Weight: 64 kg

DRUGS (5)
  1. CONCERTA [Suspect]
     Route: 048
  2. CONCERTA [Suspect]
     Indication: NARCOLEPSY
     Route: 048
  3. MODAFINIL [Suspect]
     Indication: NARCOLEPSY
     Route: 048
  4. L-TYROSINE [Concomitant]
     Indication: CATAPLEXY
     Route: 065
  5. VEINAMITOL [Concomitant]
     Route: 065

REACTIONS (2)
  - LIVEDO RETICULARIS [None]
  - OEDEMA PERIPHERAL [None]
